FAERS Safety Report 12789159 (Version 1)
Quarter: 2016Q3

REPORT INFORMATION
  Report Type: Report from Study
  Country: GB (occurrence: GB)
  Receive Date: 20160928
  Receipt Date: 20160928
  Transmission Date: 20161109
  Serious: Yes (Hospitalization)
  Sender: FDA-Public Use
  Company Number: GB-BAXALTA-2016BLT006895

PATIENT
  Sex: Male
  Weight: 115 kg

DRUGS (2)
  1. ONCASPAR [Suspect]
     Active Substance: PEGASPARGASE
     Indication: ACUTE LYMPHOCYTIC LEUKAEMIA
     Dosage: 2440 IU, DAY 2
     Route: 042
     Dates: start: 20160819, end: 20160819
  2. ONCASPAR [Suspect]
     Active Substance: PEGASPARGASE
     Dosage: 2440 IU, DAY 16
     Route: 042
     Dates: start: 20160902, end: 20160902

REACTIONS (1)
  - Skin infection [Recovering/Resolving]

NARRATIVE: CASE EVENT DATE: 20160919
